FAERS Safety Report 9397846 (Version 1)
Quarter: 2013Q3

REPORT INFORMATION
  Report Type: Spontaneous
  Country: US (occurrence: None)
  Receive Date: 20130711
  Receipt Date: 20130711
  Transmission Date: 20140515
  Serious: Yes (Hospitalization)
  Sender: FDA-Public Use
  Company Number: None

PATIENT
  Age: 30 Year
  Sex: Female

DRUGS (2)
  1. ACTEMRA [Suspect]
     Indication: RENAL TRANSPLANT
     Dosage: IVPB
     Dates: start: 20130625
  2. XANAX [Concomitant]

REACTIONS (5)
  - Confusional state [None]
  - Dysarthria [None]
  - Vision blurred [None]
  - Paraesthesia [None]
  - Muscular weakness [None]
